FAERS Safety Report 7307966-0 (Version None)
Quarter: 2011Q1

REPORT INFORMATION
  Report Type: 
  Country: None (occurrence: None)
  Receive Date: 20110223
  Receipt Date: 20110211
  Transmission Date: 20110831
  Serious: Yes (Hospitalization)
  Sender: FDA-Public Use
  Company Number: IT-BAYER-2011-014117

PATIENT
  Sex: Male

DRUGS (1)
  1. NEXAVAR [Suspect]
     Indication: HEPATIC NEOPLASM MALIGNANT RESECTABLE
     Dosage: 800 MG, QD
     Route: 048
     Dates: start: 20100918, end: 20110117

REACTIONS (2)
  - PERITONITIS [None]
  - APPENDICITIS [None]
